FAERS Safety Report 15359070 (Version 1)
Quarter: 2018Q3

REPORT INFORMATION
  Report Type: Spontaneous
  Country: US (occurrence: US)
  Receive Date: 20180906
  Receipt Date: 20180906
  Transmission Date: 20181010
  Serious: Yes (Other)
  Sender: FDA-Public Use
  Company Number: US-ASTRAZENECA-2018SF11542

PATIENT
  Sex: Female

DRUGS (4)
  1. LYNPARZA [Suspect]
     Active Substance: OLAPARIB
     Indication: OESTROGEN RECEPTOR POSITIVE BREAST CANCER
     Route: 048
  2. IBRANCE [Suspect]
     Active Substance: PALBOCICLIB
     Route: 048
  3. LYNPARZA [Suspect]
     Active Substance: OLAPARIB
     Indication: OESTROGEN RECEPTOR POSITIVE BREAST CANCER
     Route: 048
  4. FASLODEX [Suspect]
     Active Substance: FULVESTRANT
     Route: 030

REACTIONS (3)
  - Anaemia [Unknown]
  - Dyspnoea [Unknown]
  - Fatigue [Unknown]
